FAERS Safety Report 9426116 (Version 1)
Quarter: 2013Q3

REPORT INFORMATION
  Report Type: Spontaneous
  Country: US (occurrence: US)
  Receive Date: 20130730
  Receipt Date: 20130730
  Transmission Date: 20140515
  Serious: No
  Sender: FDA-Public Use
  Company Number: US-BIOGENIDEC-2013BI068908

PATIENT
  Sex: Female

DRUGS (1)
  1. TYSABRI [Suspect]
     Indication: MULTIPLE SCLEROSIS
     Route: 042
     Dates: start: 20091023

REACTIONS (7)
  - Upper-airway cough syndrome [Not Recovered/Not Resolved]
  - Hypersomnia [Recovered/Resolved]
  - Visual field defect [Not Recovered/Not Resolved]
  - Urinary incontinence [Recovered/Resolved]
  - Vertigo [Recovered/Resolved]
  - Sinusitis [Unknown]
  - Oropharyngeal pain [Not Recovered/Not Resolved]
